FAERS Safety Report 4390549-2 (Version None)
Quarter: 2004Q2

REPORT INFORMATION
  Report Type: 
  Country: None (occurrence: None)
  Receive Date: 20040630
  Receipt Date: 20040622
  Transmission Date: 20050107
  Serious: Yes (Death)
  Sender: FDA-Public Use
  Company Number: 2004UW04409

PATIENT
  Sex: Female

DRUGS (1)
  1. IRESSA [Suspect]
     Indication: LUNG NEOPLASM MALIGNANT
     Dosage: 250 MG PO
     Route: 048

REACTIONS (7)
  - ANOREXIA [None]
  - FEELING COLD [None]
  - HEADACHE [None]
  - INSOMNIA [None]
  - PRURITUS [None]
  - RESTLESSNESS [None]
  - TREMOR [None]
